FAERS Safety Report 18741625 (Version 1)
Quarter: 2021Q1

REPORT INFORMATION
  Report Type: Spontaneous
  Country: US (occurrence: US)
  Receive Date: 20210114
  Receipt Date: 20210114
  Transmission Date: 20210419
  Serious: Yes (Other)
  Sender: FDA-Public Use
  Company Number: US-GLAXOSMITHKLINE-US2020GSK257339

PATIENT
  Sex: Male

DRUGS (4)
  1. ZANTAC [Suspect]
     Active Substance: RANITIDINE HYDROCHLORIDE
     Indication: GASTRIC ULCER
     Dosage: 75 MG PRESCRIPTION
     Route: 065
     Dates: start: 198301, end: 198401
  2. RANITIDINE. [Suspect]
     Active Substance: RANITIDINE
     Indication: GASTRIC ULCER
     Dosage: 75 MG PRESCRIPTION
     Route: 065
     Dates: start: 198201, end: 200101
  3. ZANTAC [Suspect]
     Active Substance: RANITIDINE HYDROCHLORIDE
     Indication: GASTRIC ULCER
     Dosage: 75 MG PRESCRIPTION
     Route: 065
     Dates: start: 198301, end: 198401
  4. RANITIDINE. [Suspect]
     Active Substance: RANITIDINE
     Indication: GASTRIC ULCER
     Dosage: 75 MG PRESCRIPTION
     Route: 065
     Dates: start: 198201, end: 200101

REACTIONS (3)
  - Renal cancer [Unknown]
  - Oesophageal carcinoma [Unknown]
  - Prostate cancer [Unknown]
